FAERS Safety Report 6496811-1 (Version None)
Quarter: 2009Q4

REPORT INFORMATION
  Report Type: 
  Country: None (occurrence: None)
  Receive Date: 20091125
  Receipt Date: 20090407
  Transmission Date: 20100525
  Serious: Yes (Hospitalization)
  Sender: FDA-Public Use
  Company Number: 2009BH005587

PATIENT
  Age: 48 Year
  Sex: Female

DRUGS (13)
  1. DIANEAL [Suspect]
     Indication: PERITONEAL DIALYSIS
     Dosage: 15 L; EVERY DAY; IP
     Route: 033
     Dates: start: 20080717
  2. DIANEAL [Suspect]
     Indication: PERITONEAL DIALYSIS
     Dosage: 1.5 L; EVERY DAY; IP
     Route: 033
     Dates: start: 20080717
  3. NEXIUM [Concomitant]
  4. PHENOBARBITAL TAB [Concomitant]
  5. NEPHRO-VITE RX [Concomitant]
  6. ARANESP [Concomitant]
  7. CHOLCHICINE [Concomitant]
  8. RENAGEL [Concomitant]
  9. HYDROCORTISONE [Concomitant]
  10. ZEMPLAR [Concomitant]
  11. MAGNESIUM OXIDE [Concomitant]
  12. POTASSIUM CHLORIDE [Concomitant]
  13. GENTAMICIN OINTMENT [Concomitant]

REACTIONS (2)
  - PERITONEAL DIALYSIS COMPLICATION [None]
  - PERITONITIS BACTERIAL [None]
